FAERS Safety Report 22106155 (Version 1)
Quarter: 2023Q1

REPORT INFORMATION
  Report Type: Spontaneous
  Country: US (occurrence: US)
  Receive Date: 20230317
  Receipt Date: 20230317
  Transmission Date: 20230418
  Serious: Yes (Other)
  Sender: FDA-Public Use
  Company Number: US-SANOFI-01527862

PATIENT

DRUGS (1)
  1. CABLIVI [Suspect]
     Active Substance: CAPLACIZUMAB-YHDP
     Dosage: UNK
     Dates: end: 20230306

REACTIONS (2)
  - Haemorrhage [Unknown]
  - Skin weeping [Unknown]

NARRATIVE: CASE EVENT DATE: 20230306
